FAERS Safety Report 8778163 (Version 1)
Quarter: 2012Q4

REPORT INFORMATION
  Report Type: Report from Study
  Country: US (occurrence: US)
  Receive Date: 20120912
  Receipt Date: 20120912
  Transmission Date: 20130627
  Serious: Yes (Hospitalization, Other)
  Sender: FDA-Public Use
  Company Number: US-ABBOTT-12P-163-0977397-00

PATIENT
  Age: 50 Year
  Sex: Female

DRUGS (12)
  1. HUMIRA [Suspect]
     Indication: CROHN^S DISEASE
     Dates: start: 20120615, end: 20120716
  2. HUMIRA [Suspect]
  3. ACIDOPHILIS [Concomitant]
     Indication: CROHN^S DISEASE
     Dosage: 4-5 daily
  4. LEVOTHYROXINE [Concomitant]
     Indication: HYPOTHYROIDISM
     Dosage: 0.05 mg 1/day and 2/day on the weekend
  5. IRON [Concomitant]
     Indication: ANAEMIA
     Dosage: For 4-5/day
  6. VITAMIN D [Concomitant]
     Indication: PRODUCT USED FOR UNKNOWN INDICATION
  7. B-12 [Concomitant]
     Indication: VITAMIN SUPPLEMENTATION
  8. CINNAMON [Concomitant]
     Indication: BLOOD GLUCOSE ABNORMAL
  9. CINNAMON [Concomitant]
     Indication: METABOLIC DISORDER
  10. CINNAMON [Concomitant]
     Indication: CARDIOVASCULAR DISORDER
  11. FISH OIL [Concomitant]
     Indication: PRODUCT USED FOR UNKNOWN INDICATION
  12. MULTIVITAMIN [Concomitant]
     Indication: VITAMIN SUPPLEMENTATION

REACTIONS (7)
  - Pelvic mass [Recovering/Resolving]
  - Crohn^s disease [Recovering/Resolving]
  - Ovarian cyst [Recovering/Resolving]
  - Haemorrhage [Recovering/Resolving]
  - Thrombosis [Recovering/Resolving]
  - Tenderness [Recovering/Resolving]
  - Haemorrhage [Recovering/Resolving]
